FAERS Safety Report 25005255 (Version 1)
Quarter: 2025Q1

REPORT INFORMATION
  Report Type: Spontaneous
  Country: US (occurrence: US)
  Receive Date: 20250224
  Receipt Date: 20250224
  Transmission Date: 20250408
  Serious: No
  Sender: EISAI
  Company Number: US-Eisai-EC-2025-183304

PATIENT

DRUGS (3)
  1. LEQEMBI [Suspect]
     Active Substance: LECANEMAB-IRMB
     Indication: Product used for unknown indication
  2. LEQEMBI [Suspect]
     Active Substance: LECANEMAB-IRMB
  3. LEQEMBI [Suspect]
     Active Substance: LECANEMAB-IRMB

REACTIONS (1)
  - Rash pruritic [Not Recovered/Not Resolved]
